FAERS Safety Report 21846941 (Version 1)
Quarter: 2023Q1

REPORT INFORMATION
  Report Type: Spontaneous
  Country: DE (occurrence: DE)
  Receive Date: 20230111
  Receipt Date: 20230111
  Transmission Date: 20230418
  Serious: Yes (Hospitalization, Other)
  Sender: FDA-Public Use
  Company Number: DE-BAXTER-2023BAX010073

PATIENT
  Age: 45 Year
  Sex: Female

DRUGS (8)
  1. CYCLOPHOSPHAMIDE [Suspect]
     Active Substance: CYCLOPHOSPHAMIDE
     Indication: Product used for unknown indication
     Dosage: 600 MG/M2, ROUTE- INFUSION,  FIRST EC REGIMEN
     Route: 050
     Dates: start: 20221115, end: 20221115
  2. CYCLOPHOSPHAMIDE [Suspect]
     Active Substance: CYCLOPHOSPHAMIDE
     Dosage: 450 MG/M2, ROUTE- INFUSION, SECOND EC REGIMEN
     Route: 050
     Dates: start: 20221206, end: 20221206
  3. MESNA [Suspect]
     Active Substance: MESNA
     Indication: Product used for unknown indication
     Dosage: 400 MG
     Route: 040
     Dates: start: 20221115
  4. MESNA [Suspect]
     Active Substance: MESNA
     Dosage: 400 MG
     Route: 040
     Dates: start: 20221206
  5. EPIRUBICIN [Suspect]
     Active Substance: EPIRUBICIN
     Indication: Product used for unknown indication
     Dosage: FIRST EC REGIMEN, NORMAL DOSE
     Route: 065
     Dates: start: 20221115
  6. EPIRUBICIN [Suspect]
     Active Substance: EPIRUBICIN
     Dosage: REDUCED FORM (75%), SECOND EC REGIMEN
     Route: 065
     Dates: start: 20221206
  7. PEGFILGRASTIM [Concomitant]
     Active Substance: PEGFILGRASTIM
     Indication: Product used for unknown indication
     Dosage: 6 MG
     Route: 065
     Dates: start: 20221116
  8. PEGFILGRASTIM [Concomitant]
     Active Substance: PEGFILGRASTIM
     Dosage: UNK
     Route: 065
     Dates: start: 20221207

REACTIONS (10)
  - Diarrhoea haemorrhagic [Recovered/Resolved]
  - Neutrophil count decreased [Unknown]
  - White blood cell count decreased [Unknown]
  - Febrile neutropenia [Recovered/Resolved]
  - Pyrexia [Recovered/Resolved]
  - Chills [Recovered/Resolved]
  - Influenza [Unknown]
  - Chills [Unknown]
  - Pyrexia [Unknown]
  - Abdominal pain [Recovered/Resolved]

NARRATIVE: CASE EVENT DATE: 20221122
